FAERS Safety Report 5179205-0 (Version None)
Quarter: 2006Q4

REPORT INFORMATION
  Report Type: 
  Country: None (occurrence: None)
  Receive Date: 20061211
  Receipt Date: 20061128
  Transmission Date: 20070319
  Serious: Yes (Death, Hospitalization, Disabling)
  Sender: FDA-Public Use
  Company Number: HQWYE519005SEP03

PATIENT
  Age: 56 Year
  Sex: Female
  Weight: 60.9 kg

DRUGS (3)
  1. PREMPRO [Suspect]
     Indication: HORMONE REPLACEMENT THERAPY
     Dosage: ORAL
     Route: 048
     Dates: start: 20020301, end: 20020801
  2. PREMARIN [Suspect]
  3. PROVERA [Suspect]

REACTIONS (10)
  - APALLIC SYNDROME [None]
  - CEREBRAL HAEMORRHAGE [None]
  - COMA [None]
  - CONGENITAL CEREBROVASCULAR ANOMALY [None]
  - ENCEPHALOMALACIA [None]
  - HYPERTENSION [None]
  - MASTOIDITIS [None]
  - RUPTURED CEREBRAL ANEURYSM [None]
  - SUBARACHNOID HAEMORRHAGE [None]
  - SUBDURAL HAEMATOMA [None]
